FAERS Safety Report 10788243 (Version 2)
Quarter: 2015Q1

REPORT INFORMATION
  Report Type: Spontaneous
  Country: JP (occurrence: JP)
  Receive Date: 20150212
  Receipt Date: 20150226
  Transmission Date: 20150721
  Serious: Yes (Death)
  Sender: FDA-Public Use
  Company Number: JP-ROCHE-1536400

PATIENT
  Age: 12 Year
  Sex: Female
  Weight: 28.7 kg

DRUGS (36)
  1. ACTEMRA [Suspect]
     Active Substance: TOCILIZUMAB
     Indication: HISTIOCYTOSIS HAEMATOPHAGIC
     Route: 041
     Dates: start: 20150109, end: 20150109
  2. ATARAX-P [Concomitant]
     Active Substance: HYDROXYZINE HYDROCHLORIDE
     Dosage: PHYSIOLOGICAL SALT SOLUTION 10ML
     Route: 041
     Dates: start: 20150110, end: 20150112
  3. CIPROFLOXACIN. [Concomitant]
     Active Substance: CIPROFLOXACIN
     Route: 041
     Dates: start: 20150106, end: 20150106
  4. CIPROFLOXACIN. [Concomitant]
     Active Substance: CIPROFLOXACIN
     Route: 041
     Dates: start: 20150107, end: 20150110
  5. VANCOMYCIN [Concomitant]
     Active Substance: VANCOMYCIN
     Route: 041
     Dates: start: 20150106, end: 20150109
  6. DALTEPARIN SODIUM [Concomitant]
     Active Substance: DALTEPARIN SODIUM
     Dosage: PHYSIOLOGICAL SALT SOLUTION 45.5ML
     Route: 041
     Dates: start: 20150106, end: 20150110
  7. DISTILLED WATER [Concomitant]
     Route: 041
     Dates: start: 20150106, end: 20150110
  8. ACICLOVIR [Concomitant]
     Active Substance: ACYCLOVIR
     Dosage: PHYSIOLOGICAL SALT SOLUTION 60ML
     Route: 041
     Dates: start: 20150106, end: 20150110
  9. ATARAX-P [Concomitant]
     Active Substance: HYDROXYZINE HYDROCHLORIDE
     Dosage: PHYSIOLOGICAL SALT SOLUTION 20ML
     Route: 041
     Dates: start: 20150106, end: 20150109
  10. ACELIO [Concomitant]
     Active Substance: ACETAMINOPHEN
     Route: 041
     Dates: start: 20150109, end: 20150109
  11. GLUCOSE [Concomitant]
     Active Substance: DEXTROSE
     Route: 041
     Dates: start: 20150106, end: 20150110
  12. DILTIAZEM HYDROCHLORIDE. [Concomitant]
     Active Substance: DILTIAZEM HYDROCHLORIDE
     Route: 041
     Dates: start: 20150106, end: 20150109
  13. KCL CORRECTIVE [Concomitant]
     Dosage: AMOUNT OF 1 ONCE ADMINISTRATION: 30 [MEKU]
     Route: 041
     Dates: start: 20150106, end: 20150107
  14. POLARAMINE [Concomitant]
     Active Substance: DEXCHLORPHENIRAMINE MALEATE
     Route: 065
     Dates: start: 20150109, end: 20150109
  15. DECADRON [Concomitant]
     Active Substance: DEXAMETHASONE
     Indication: HISTIOCYTOSIS HAEMATOPHAGIC
     Dosage: PHYSIOLOGICAL SALT SOLUTION 8ML
     Route: 041
     Dates: start: 20150108, end: 20150110
  16. GLUCOSE [Concomitant]
     Active Substance: DEXTROSE
     Route: 041
     Dates: start: 20150106, end: 20150110
  17. GLUCOSE [Concomitant]
     Active Substance: DEXTROSE
     Route: 041
     Dates: start: 20150110, end: 20150110
  18. FUNGUARD [Concomitant]
     Active Substance: MICAFUNGIN SODIUM
     Route: 041
     Dates: start: 20150106, end: 20150110
  19. MEROPENEM. [Concomitant]
     Active Substance: MEROPENEM
     Dosage: PHYSIOLOGICAL SALT SOLUTION 20ML
     Route: 041
     Dates: start: 20150106, end: 20150109
  20. MAGNESIUM SULFATE. [Concomitant]
     Active Substance: MAGNESIUM SULFATE
     Route: 041
     Dates: start: 20150109, end: 20150109
  21. AMBISOME [Concomitant]
     Active Substance: AMPHOTERICIN B
     Route: 041
     Dates: start: 20150106, end: 20150110
  22. GLUCOSE [Concomitant]
     Active Substance: DEXTROSE
     Route: 041
     Dates: start: 20150110, end: 20150110
  23. KAYTWO N [Concomitant]
     Active Substance: MENATETRENONE
     Route: 042
     Dates: start: 20150109, end: 20150109
  24. SODIUM NITROPRUSSIDE [Concomitant]
     Active Substance: SODIUM NITROPRUSSIDE
     Dosage: PHYSIOLOGICAL SALT SOLUTION 30ML?NITOPRO, HYDRATE
     Route: 041
     Dates: start: 20150106, end: 20150110
  25. VANCOMYCIN [Concomitant]
     Active Substance: VANCOMYCIN
     Route: 041
     Dates: start: 20150110, end: 20150110
  26. MEROPENEM. [Concomitant]
     Active Substance: MEROPENEM
     Dosage: PHYSIOLOGICAL SALT SOLUTION 20ML
     Route: 041
     Dates: start: 20150110, end: 20150110
  27. DECADRON [Concomitant]
     Active Substance: DEXAMETHASONE
     Indication: HISTIOCYTOSIS HAEMATOPHAGIC
     Route: 041
     Dates: start: 20150106, end: 20150107
  28. GLUCOSE [Concomitant]
     Active Substance: DEXTROSE
     Route: 041
     Dates: start: 20150106, end: 20150109
  29. GLUCOSE [Concomitant]
     Active Substance: DEXTROSE
     Route: 041
     Dates: start: 20150106, end: 20150109
  30. ELNEOPA [Concomitant]
     Active Substance: UNSPECIFIED INGREDIENT
     Route: 041
     Dates: start: 20150106, end: 20150109
  31. PROGRAF [Concomitant]
     Active Substance: TACROLIMUS\TACROLIMUS ANHYDROUS
     Indication: GRAFT VERSUS HOST DISEASE
     Dosage: SINGLE DOSE ADMINISTRATION AND PHYSIOLOGICAL SALT SOLUTION 48ML
     Route: 042
     Dates: start: 20141225, end: 20150111
  32. SOLU-CORTEF [Concomitant]
     Active Substance: HYDROCORTISONE SODIUM SUCCINATE
     Indication: PROPHYLAXIS
     Dosage: SINGLE DOSE ADMINISTRATION AND PHYSIOLOGICAL SALT SOLUTION 10ML
     Route: 041
     Dates: start: 20150109, end: 20150109
  33. KAYTWO N [Concomitant]
     Active Substance: MENATETRENONE
     Route: 042
     Dates: start: 20150107, end: 20150107
  34. KCL CORRECTIVE [Concomitant]
     Dosage: AMOUNT OF 1 ONCE ADMINISTRATION: 40 [MEKU]
     Route: 041
     Dates: start: 20150108, end: 20150109
  35. MAGNESIUM SULFATE. [Concomitant]
     Active Substance: MAGNESIUM SULFATE
     Route: 041
     Dates: start: 20150106, end: 20150108
  36. HUMULIN R [Concomitant]
     Active Substance: INSULIN HUMAN
     Route: 041
     Dates: start: 20150106, end: 20150109

REACTIONS (3)
  - Off label use [Unknown]
  - Multi-organ failure [Fatal]
  - Histiocytosis haematophagic [Fatal]

NARRATIVE: CASE EVENT DATE: 20150111
